FAERS Safety Report 14658103 (Version 2)
Quarter: 2018Q1

REPORT INFORMATION
  Report Type: Spontaneous
  Country: BR (occurrence: BR)
  Receive Date: 20180320
  Receipt Date: 20180326
  Transmission Date: 20180509
  Serious: Yes (Death, Hospitalization)
  Sender: FDA-Public Use
  Company Number: BR-AMGEN-BRASP2015020437

PATIENT
  Age: 69 Year
  Sex: Female
  Weight: 70 kg

DRUGS (5)
  1. ENBREL [Suspect]
     Active Substance: ETANERCEPT
     Indication: RHEUMATOID ARTHRITIS
     Dosage: 50 MG, WEEKLY
     Route: 065
     Dates: start: 20141229, end: 201701
  2. ARAVA [Concomitant]
     Active Substance: LEFLUNOMIDE
     Dosage: UNK
  3. METICORTEN [Concomitant]
     Active Substance: PREDNISONE
     Dosage: UNK
  4. CALCIUM [Concomitant]
     Active Substance: CALCIUM
     Dosage: UNK
  5. LOSARTAN. [Concomitant]
     Active Substance: LOSARTAN
     Dosage: UNK

REACTIONS (5)
  - Injection site erythema [Unknown]
  - Respiratory failure [Fatal]
  - Injection site pruritus [Unknown]
  - Pneumonia [Fatal]
  - Rheumatoid arthritis [Fatal]

NARRATIVE: CASE EVENT DATE: 201710
